FAERS Safety Report 5746186-8 (Version None)
Quarter: 2008Q2

REPORT INFORMATION
  Report Type: 
  Country: None (occurrence: None)
  Receive Date: 20080522
  Receipt Date: 20080513
  Transmission Date: 20081010
  Serious: Yes (Hospitalization)
  Sender: FDA-Public Use
  Company Number: US-TYCO HEALTHCARE/MALLINCKRODT-T200800837

PATIENT

DRUGS (9)
  1. PAMELOR [Suspect]
     Dosage: OVER 40 PILLS OF 50 MG, UNK
     Route: 048
  2. ASPIRIN [Concomitant]
  3. CHLORDIAZEPOXIDE [Concomitant]
  4. HYDROCHLOROTHIAZIDE [Concomitant]
  5. LISINOPRIL [Concomitant]
  6. METFORMIN HCL [Concomitant]
  7. ESOMEPRAZOLE [Concomitant]
  8. TRAMADOL HCL [Concomitant]
  9. SIMVASTATIN [Concomitant]

REACTIONS (5)
  - BRUGADA SYNDROME [None]
  - HYPOTENSION [None]
  - OVERDOSE [None]
  - OXYGEN SATURATION DECREASED [None]
  - SUICIDE ATTEMPT [None]
